FAERS Safety Report 5403250-0 (Version None)
Quarter: 2007Q3

REPORT INFORMATION
  Report Type: 
  Country: None (occurrence: None)
  Receive Date: 20070727
  Receipt Date: 20070718
  Transmission Date: 20080115
  Serious: Yes (Other)
  Sender: FDA-Public Use
  Company Number: 07-001384

PATIENT
  Age: 26 Year
  Sex: Female
  Weight: 56.7 kg

DRUGS (3)
  1. ESTROSTEP FE [Suspect]
     Indication: CONTRACEPTION
     Dosage: 20-30-35/1000 UG QD, ORAL
     Route: 048
     Dates: start: 20000101
  2. ESTROSTEP FE [Suspect]
     Indication: MENSTRUATION IRREGULAR
     Dosage: 20-30-35/1000 UG QD, ORAL
     Route: 048
     Dates: start: 20000101
  3. MULTIVITAMINS (ASCORBIC ACID, ERGOCALCIFEROL, FOLIC ACID, NICOTINAMIDE [Concomitant]

REACTIONS (5)
  - AUTOIMMUNE THYROIDITIS [None]
  - CONTACT LENS INTOLERANCE [None]
  - CORNEAL ABRASION [None]
  - DRY EYE [None]
  - EYE PAIN [None]
